FAERS Safety Report 5792486-5 (Version None)
Quarter: 2008Q2

REPORT INFORMATION
  Report Type: 
  Country: None (occurrence: None)
  Receive Date: 20080626
  Receipt Date: 20080614
  Transmission Date: 20081010
  Serious: Yes (Other)
  Sender: FDA-Public Use
  Company Number: US-PFIZER INC-2008016846

PATIENT
  Sex: Female
  Weight: 88 kg

DRUGS (21)
  1. CHANTIX [Suspect]
     Indication: SMOKING CESSATION THERAPY
     Route: 048
  2. COFFEE [Suspect]
  3. HALDOL [Concomitant]
     Indication: MENTAL DISORDER
     Route: 048
  4. HALDOL [Concomitant]
  5. ZYPREXA [Concomitant]
  6. MIRTAZAPINE [Concomitant]
  7. ZOCOR [Concomitant]
  8. COGENTIN [Concomitant]
  9. HYDROXYZINE [Concomitant]
  10. CLONAZEPAM [Concomitant]
  11. PRILOSEC [Concomitant]
  12. DARVOCET [Concomitant]
  13. MOTRIN [Concomitant]
  14. POTASSIUM CHLORIDE [Concomitant]
  15. TOPROL-XL [Concomitant]
  16. ALL OTHER THERAPEUTIC PRODUCTS [Concomitant]
  17. METFORMIN HCL [Concomitant]
     Indication: DIABETES MELLITUS
  18. SIMVASTATIN [Concomitant]
     Indication: BLOOD CHOLESTEROL
  19. TOPROL-XL [Concomitant]
     Indication: HYPERTENSION
  20. VISTARIL [Concomitant]
  21. CORTISONE [Concomitant]

REACTIONS (55)
  - ABNORMAL BEHAVIOUR [None]
  - ABNORMAL DREAMS [None]
  - ABORTION SPONTANEOUS [None]
  - ADVERSE EVENT [None]
  - ADVERSE REACTION [None]
  - ANXIETY [None]
  - ARTHRITIS [None]
  - ARTHROPATHY [None]
  - BACK PAIN [None]
  - BED REST [None]
  - BLOOD CHOLESTEROL DECREASED [None]
  - BLOOD GLUCOSE DECREASED [None]
  - BLOOD GLUCOSE INCREASED [None]
  - BLOOD PRESSURE INCREASED [None]
  - DEPRESSION [None]
  - DIARRHOEA [None]
  - DRUG INEFFECTIVE [None]
  - DYSPNOEA [None]
  - ENURESIS [None]
  - FATIGUE [None]
  - FRUSTRATION [None]
  - GENERAL PHYSICAL HEALTH DETERIORATION [None]
  - HALLUCINATION [None]
  - HALLUCINATION, AUDITORY [None]
  - HEADACHE [None]
  - HEART RATE INCREASED [None]
  - HYPERSOMNIA [None]
  - ILL-DEFINED DISORDER [None]
  - INCREASED APPETITE [None]
  - INFLUENZA LIKE ILLNESS [None]
  - INSOMNIA [None]
  - IRRITABILITY [None]
  - MEDICATION ERROR [None]
  - MEMORY IMPAIRMENT [None]
  - MENOPAUSE [None]
  - MENTAL IMPAIRMENT [None]
  - MOOD ALTERED [None]
  - NAUSEA [None]
  - NERVOUSNESS [None]
  - PANIC ATTACK [None]
  - POLYDIPSIA [None]
  - SLEEP DISORDER [None]
  - SLEEP TALKING [None]
  - SMOKER [None]
  - SOMNAMBULISM [None]
  - SOMNOLENCE [None]
  - STRESS [None]
  - TENSION [None]
  - THROMBOSIS [None]
  - URINARY TRACT INFECTION [None]
  - VIRAL INFECTION [None]
  - VULVOVAGINAL BURNING SENSATION [None]
  - WEIGHT DECREASED [None]
  - WEIGHT INCREASED [None]
  - WITHDRAWAL SYNDROME [None]
